FAERS Safety Report 13726415 (Version 7)
Quarter: 2020Q2

REPORT INFORMATION
  Report Type: Spontaneous
  Country: US (occurrence: US)
  Receive Date: 20170706
  Receipt Date: 20200616
  Transmission Date: 20200713
  Serious: Yes (Other)
  Sender: FDA-Public Use
  Company Number: US-PFIZER INC-2017290771

PATIENT
  Age: 81 Year
  Sex: Female

DRUGS (1)
  1. LYRICA [Suspect]
     Active Substance: PREGABALIN
     Dosage: UNK
     Dates: end: 20200610

REACTIONS (12)
  - Product dose omission [Unknown]
  - Memory impairment [Unknown]
  - Movement disorder [Unknown]
  - Pain [Unknown]
  - Nervousness [Unknown]
  - Emotional disorder [Unknown]
  - Dysarthria [Unknown]
  - Fall [Unknown]
  - Thought blocking [Unknown]
  - Frustration tolerance decreased [Unknown]
  - Cognitive disorder [Unknown]
  - Diabetes mellitus [Unknown]
